FAERS Safety Report 14673029 (Version 1)
Quarter: 2018Q1

REPORT INFORMATION
  Report Type: Spontaneous
  Country: DE (occurrence: DE)
  Receive Date: 20180323
  Receipt Date: 20180323
  Transmission Date: 20180509
  Serious: Yes (Death, Life-Threatening, Hospitalization, Other)
  Sender: FDA-Public Use
  Company Number: DE-SUN PHARMACEUTICAL INDUSTRIES LTD-2018RR-167910

PATIENT
  Age: 48 Year
  Sex: Female

DRUGS (5)
  1. 5-FU [Suspect]
     Active Substance: FLUOROURACIL
     Indication: APPENDIX CANCER
     Dosage: UNK
     Route: 065
  2. CALCIUM FOLINAT [Suspect]
     Active Substance: LEUCOVORIN CALCIUM
     Indication: APPENDIX CANCER
     Dosage: 20 MG/M^2
     Route: 065
     Dates: start: 2016
  3. OXALIPLATIN. [Suspect]
     Active Substance: OXALIPLATIN
     Indication: APPENDIX CANCER
     Dosage: UNK
     Route: 065
  4. OXALIPLATIN. [Suspect]
     Active Substance: OXALIPLATIN
     Indication: DISEASE RECURRENCE
     Dosage: 300 MG/M^2
     Route: 033
     Dates: start: 2016
  5. 5-FU [Suspect]
     Active Substance: FLUOROURACIL
     Indication: DISEASE RECURRENCE
     Dosage: 400 MG/M^2
     Route: 042
     Dates: start: 2016

REACTIONS (5)
  - Interstitial lung disease [Fatal]
  - Right ventricular failure [Fatal]
  - Drug ineffective [Unknown]
  - Respiratory failure [Fatal]
  - Pulmonary hypertension [Fatal]
